FAERS Safety Report 6018110-4 (Version None)
Quarter: 2008Q4

REPORT INFORMATION
  Report Type: 
  Country: None (occurrence: None)
  Receive Date: 20081223
  Receipt Date: 20081205
  Transmission Date: 20090506
  Serious: No
  Sender: FDA-Public Use
  Company Number: FR-PFIZER INC-2008156172

PATIENT

DRUGS (2)
  1. SILDENAFIL CITRATE [Suspect]
     Indication: PULMONARY HYPERTENSION
     Route: 048
     Dates: start: 20060601
  2. BOSENTAN [Concomitant]

REACTIONS (4)
  - BLEPHARITIS [None]
  - CORNEAL DISORDER [None]
  - ERYTHEMA OF EYELID [None]
  - VISUAL ACUITY REDUCED [None]
